FAERS Safety Report 21362241 (Version 14)
Quarter: 2024Q1

REPORT INFORMATION
  Report Type: Report from Study
  Country: US (occurrence: US)
  Receive Date: 20220922
  Receipt Date: 20240112
  Transmission Date: 20240410
  Serious: No
  Sender: FDA-Public Use
  Company Number: US-NOVARTISTESTPH-NVSC2022US210767

PATIENT
  Age: 67 Year
  Sex: Female

DRUGS (1)
  1. KESIMPTA [Suspect]
     Active Substance: OFATUMUMAB
     Indication: Product used for unknown indication
     Dosage: UNK
     Route: 065
     Dates: start: 20220705

REACTIONS (8)
  - Muscular weakness [Unknown]
  - Movement disorder [Unknown]
  - Mobility decreased [Unknown]
  - Depressed mood [Unknown]
  - Pain [Unknown]
  - Product supply issue [Unknown]
  - Therapeutic product effect decreased [Unknown]
  - Dizziness [Unknown]

NARRATIVE: CASE EVENT DATE: 20230420
